FAERS Safety Report 6233746-3 (Version None)
Quarter: 2009Q2

REPORT INFORMATION
  Report Type: 
  Country: None (occurrence: None)
  Receive Date: 20090618
  Receipt Date: 20071029
  Transmission Date: 20091009
  Serious: Yes (Death)
  Sender: FDA-Public Use
  Company Number: US-ASTRAZENECA-2006UW26478

PATIENT
  Sex: Female
  Weight: 90.7 kg

DRUGS (20)
  1. SEROQUEL [Suspect]
     Indication: SCHIZOPHRENIA
     Route: 048
     Dates: start: 20010101
  2. SEROQUEL [Suspect]
     Indication: BIPOLAR DISORDER
     Route: 048
     Dates: start: 20010101
  3. SEROQUEL [Suspect]
     Indication: DEPRESSION
     Route: 048
     Dates: start: 20010101
  4. SEROQUEL [Suspect]
     Dosage: 100 - 900 MG DAILY
     Route: 048
     Dates: start: 20020114
  5. SEROQUEL [Suspect]
     Dosage: 100 - 900 MG DAILY
     Route: 048
     Dates: start: 20020114
  6. SEROQUEL [Suspect]
     Dosage: 100 - 900 MG DAILY
     Route: 048
     Dates: start: 20020114
  7. ZYPREXA [Concomitant]
     Dosage: STRENGTH - 5 MG, 7.5 MG, 10 MG
     Route: 048
     Dates: start: 20020723
  8. NEURONTIN [Concomitant]
     Route: 048
     Dates: start: 20020218
  9. NEURONTIN [Concomitant]
     Dosage: STRENGTH - 100 MG, 600 MG
     Route: 048
     Dates: start: 20030912
  10. EFFEXOR XR [Concomitant]
     Dosage: STRENGTH - 75 MG, 150 MG, DOSE - 75 - 300 MG DAILY
     Route: 048
     Dates: start: 20020205
  11. ABILIFY [Concomitant]
     Dosage: STRENGTH - 10MG, 20 MG, DOSE - 40 MG DAILY
     Route: 048
     Dates: start: 20021211
  12. LEXAPRO [Concomitant]
     Dosage: STRENGTH - 10MG, 20 MG, DOSE - 20 MG DAILY
     Route: 048
     Dates: start: 20030210
  13. SKELAXIN [Concomitant]
     Dosage: STRENGTH - 400 MG, 800 MG
     Route: 048
     Dates: start: 20030214
  14. CLONAZEPAM [Concomitant]
     Route: 048
     Dates: start: 20060206
  15. RISPERDAL [Concomitant]
     Dosage: 2 - 4 MG DAILY
     Route: 048
     Dates: start: 20060206
  16. CARISOPRODOL [Concomitant]
     Route: 048
     Dates: start: 20060913
  17. GEODON [Concomitant]
     Route: 048
     Dates: start: 20070214
  18. TRILEPTAL [Concomitant]
     Dosage: 150 - 1200 MG DAILY
     Route: 048
     Dates: start: 20040204
  19. DIAZEPAM [Concomitant]
     Dosage: STRENGTH - 2 MG, 5 MG, 10 MG
     Route: 048
     Dates: start: 20030904
  20. BENZTROPINE [Concomitant]
     Route: 048
     Dates: start: 20060912

REACTIONS (2)
  - DEATH [None]
  - HYPERGLYCAEMIA [None]
